FAERS Safety Report 10247263 (Version 2)
Quarter: 2014Q3

REPORT INFORMATION
  Report Type: Spontaneous
  Country: US (occurrence: US)
  Receive Date: 20140619
  Receipt Date: 20140821
  Transmission Date: 20150326
  Serious: No
  Sender: FDA-Public Use
  Company Number: US-009507513-1406USA009608

PATIENT
  Sex: Female
  Weight: 48.73 kg

DRUGS (7)
  1. CALCIUM (UNSPECIFIED) (+) VITAMIN D (UNSPECIFIED) [Concomitant]
     Active Substance: CALCIUM CARBONATE\VITAMIN D
     Indication: OSTEOPOROSIS
     Dosage: UNK, UNKNOWN
  2. MELOXICAM. [Concomitant]
     Active Substance: MELOXICAM
     Indication: BACK DISORDER
     Dosage: UNK, UNKNOWN
  3. PROLIA [Concomitant]
     Active Substance: DENOSUMAB
     Indication: OSTEOPOROSIS
     Dosage: UNK, UNKNOWN
  4. SIMVASTATIN. [Concomitant]
     Active Substance: SIMVASTATIN
     Indication: PRODUCT USED FOR UNKNOWN INDICATION
     Dosage: UNK, UNKNOWN
  5. OXYTROL FOR WOMEN [Suspect]
     Active Substance: OXYBUTYNIN
     Indication: CYSTOPEXY
     Dosage: 1 DF, Q4D
     Route: 062
     Dates: start: 201405, end: 20140718
  6. OXYTROL FOR WOMEN [Suspect]
     Active Substance: OXYBUTYNIN
     Indication: URINARY INCONTINENCE
  7. LISINOPRIL. [Concomitant]
     Active Substance: LISINOPRIL
     Indication: CARDIAC DISORDER
     Dosage: UNK, UNKNOWN

REACTIONS (6)
  - Product adhesion issue [Unknown]
  - Pain in extremity [Recovered/Resolved]
  - Back pain [Recovered/Resolved]
  - Application site pruritus [Unknown]
  - Application site erythema [Unknown]
  - Application site rash [Unknown]

NARRATIVE: CASE EVENT DATE: 2014
